FAERS Safety Report 8398209-8 (Version None)
Quarter: 2012Q2

REPORT INFORMATION
  Report Type: 
  Country: None (occurrence: None)
  Receive Date: 20120531
  Receipt Date: 20120525
  Transmission Date: 20120825
  Serious: Yes (Other)
  Sender: FDA-Public Use
  Company Number: PHEH2012US011001

PATIENT
  Sex: Female

DRUGS (6)
  1. CALCIUM WITH VITAMIN D [Concomitant]
  2. GILENYA [Suspect]
     Dosage: 0.5 MG, QD
     Route: 048
  3. MULTI-VITAMIN [Concomitant]
  4. ZOCOR [Concomitant]
     Dosage: 20 MG, UNK
  5. VITAMIN D [Concomitant]
     Dosage: 1000 U, UNK
  6. FISH OIL [Concomitant]

REACTIONS (1)
  - LIVER DISORDER [None]
